FAERS Safety Report 23523683 (Version 2)
Quarter: 2024Q1

REPORT INFORMATION
  Report Type: Spontaneous
  Country: PT (occurrence: PT)
  Receive Date: 20240214
  Receipt Date: 20240216
  Transmission Date: 20240410
  Serious: Yes (Other)
  Sender: FDA-Public Use
  Company Number: None

PATIENT
  Age: 75 Year
  Sex: Female
  Weight: 50 kg

DRUGS (4)
  1. DONEPEZIL [Suspect]
     Active Substance: DONEPEZIL
     Indication: Vascular cognitive impairment
     Dosage: FREQUENCY UNKNOWN
     Route: 048
     Dates: start: 202311
  2. DONEPEZIL [Suspect]
     Active Substance: DONEPEZIL
     Route: 048
     Dates: start: 20240102, end: 20240106
  3. RAMIPRIL [Concomitant]
     Active Substance: RAMIPRIL
     Indication: Hypertension
     Dates: start: 2021
  4. ATORVASTATIN [Concomitant]
     Active Substance: ATORVASTATIN
     Indication: Dyslipidaemia
     Dosage: 1 COMPRIMIDO POR DIA, ? NOITE
     Dates: start: 202310

REACTIONS (1)
  - Hallucination, visual [Recovered/Resolved]
